FAERS Safety Report 5573287-X (Version None)
Quarter: 2007Q4

REPORT INFORMATION
  Report Type: 
  Country: None (occurrence: None)
  Receive Date: 20071224
  Receipt Date: 20071220
  Transmission Date: 20080405
  Serious: Yes (Disabling)
  Sender: FDA-Public Use
  Company Number: PHHO2007DK19483

PATIENT
  Age: 77 Year
  Sex: Male
  Weight: 95 kg

DRUGS (1)
  1. STI 571 VS IFN-ALPHA + CYTARABINE [Suspect]
     Indication: CHRONIC MYELOID LEUKAEMIA
     Dosage: 400 MG, QD
     Route: 048
     Dates: start: 20000906, end: 20071113

REACTIONS (7)
  - CEREBRAL INFARCTION [None]
  - FOOT FRACTURE [None]
  - HYPERSENSITIVITY [None]
  - INCLUSION BODY MYOSITIS [None]
  - MUSCULAR WEAKNESS [None]
  - MYOPATHY [None]
  - RASH [None]
